FAERS Safety Report 14559502 (Version 1)
Quarter: 2018Q1

REPORT INFORMATION
  Report Type: Other
  Country: CN (occurrence: CN)
  Receive Date: 20180221
  Receipt Date: 20180221
  Transmission Date: 20180509
  Serious: Yes (Other)
  Sender: FDA-Public Use
  Company Number: CN-GEHC-2018CSU000673

PATIENT

DRUGS (2)
  1. OMNIPAQUE [Suspect]
     Active Substance: IOHEXOL
     Indication: SKIN TEST
     Dosage: UNK, SINGLE
     Route: 023
     Dates: start: 20171116, end: 20171116
  2. OMNIPAQUE [Suspect]
     Active Substance: IOHEXOL
     Indication: PRODUCT USED FOR UNKNOWN INDICATION
     Dosage: 350 MG, SINGLE
     Route: 042
     Dates: start: 20171116, end: 20171116

REACTIONS (6)
  - Asthenia [Unknown]
  - Off label use [Recovered/Resolved]
  - Urticaria [Recovered/Resolved]
  - Dizziness [Recovering/Resolving]
  - Dyspnoea [Unknown]
  - Chest discomfort [Recovering/Resolving]

NARRATIVE: CASE EVENT DATE: 20171116
